FAERS Safety Report 24716784 (Version 2)
Quarter: 2024Q4

REPORT INFORMATION
  Report Type: Report from Study
  Country: AU (occurrence: AU)
  Receive Date: 20241210
  Receipt Date: 20241212
  Transmission Date: 20250115
  Serious: Yes (Death)
  Sender: KARYOPHARM THERAPEUTICS
  Company Number: AU-ANTENGENE-20241202897

PATIENT
  Age: 92 Year
  Sex: Male

DRUGS (1)
  1. SELINEXOR [Suspect]
     Active Substance: SELINEXOR
     Indication: Diffuse large B-cell lymphoma
     Dosage: 60 MG, 2X/WEEK
     Route: 048

REACTIONS (1)
  - Diffuse large B-cell lymphoma [Fatal]
